FAERS Safety Report 17591621 (Version 1)
Quarter: 2020Q1

REPORT INFORMATION
  Report Type: Spontaneous
  Country: US (occurrence: US)
  Receive Date: 20200326
  Receipt Date: 20200326
  Transmission Date: 20200409
  Serious: No
  Sender: FDA-Public Use
  Company Number: None

PATIENT
  Age: 57 Year
  Weight: 90 kg

DRUGS (14)
  1. EMGALITY [Suspect]
     Active Substance: GALCANEZUMAB-GNLM
     Indication: MIGRAINE
     Dosage: ?          QUANTITY:2 INJECTION(S);OTHER FREQUENCY:MONTHLY;?
     Route: 030
     Dates: start: 20200207, end: 20200207
  2. TRAZDONE [Concomitant]
     Active Substance: TRAZODONE HYDROCHLORIDE
  3. SEROQUEL B12 INJECTIONS [Concomitant]
  4. METROPOLOL [Concomitant]
     Active Substance: METOPROLOL
  5. PANTOPROZOLE [Concomitant]
     Active Substance: PANTOPRAZOLE SODIUM
  6. ZOLOFT [Concomitant]
     Active Substance: SERTRALINE HYDROCHLORIDE
  7. LEVOTHROXINE [Concomitant]
     Active Substance: LEVOTHYROXINE
  8. CLONAZEPAM. [Concomitant]
     Active Substance: CLONAZEPAM
  9. MELATONIN [Concomitant]
     Active Substance: MELATONIN
  10. PRN: HYDROCODONE [Concomitant]
  11. ASPRIN [Concomitant]
     Active Substance: ASPIRIN
  12. AMTRIPTYLINE [Concomitant]
  13. HYDRALIZINE [Concomitant]
  14. TIZANIDINE. [Concomitant]
     Active Substance: TIZANIDINE

REACTIONS (9)
  - Migraine [None]
  - Vision blurred [None]
  - Memory impairment [None]
  - Fatigue [None]
  - Syncope [None]
  - Decreased appetite [None]
  - Myalgia [None]
  - Arthralgia [None]
  - Dizziness [None]

NARRATIVE: CASE EVENT DATE: 20200210
